FAERS Safety Report 10561860 (Version 2)
Quarter: 2015Q3

REPORT INFORMATION
  Report Type: Report from Study
  Country: US (occurrence: US)
  Receive Date: 20141104
  Receipt Date: 20150703
  Transmission Date: 20151125
  Serious: Yes (Other)
  Sender: FDA-Public Use
  Company Number: US-GILEAD-2014-0120914

PATIENT
  Age: 69 Year
  Sex: Female

DRUGS (3)
  1. VENTAVIS [Concomitant]
     Active Substance: ILOPROST
  2. AMBRISENTAN [Suspect]
     Active Substance: AMBRISENTAN
     Indication: PULMONARY HYPERTENSION
     Dosage: 10 MG, QD
     Route: 065
     Dates: start: 20080315
  3. AMBRISENTAN [Suspect]
     Active Substance: AMBRISENTAN
     Indication: SCLERODERMA

REACTIONS (3)
  - Asthenia [Unknown]
  - Scleroderma [Unknown]
  - Malnutrition [Unknown]
